FAERS Safety Report 17579680 (Version 1)
Quarter: 2020Q1

REPORT INFORMATION
  Report Type: Spontaneous
  Country: JP (occurrence: JP)
  Receive Date: 20200325
  Receipt Date: 20200325
  Transmission Date: 20200409
  Serious: Yes (Other)
  Sender: FDA-Public Use
  Company Number: NVSJ2020JP003585

PATIENT
  Sex: Female

DRUGS (2)
  1. STALEVO [Suspect]
     Active Substance: CARBIDOPA\ENTACAPONE\LEVODOPA
     Dosage: 1 DF:LEVODOPA 100MG, CARBIDOPA HYDRATE 10.8MG(CARBIDOPA 10MG), ENTACAPONE 100MG, BID
     Route: 048
  2. STALEVO [Suspect]
     Active Substance: CARBIDOPA\ENTACAPONE\LEVODOPA
     Indication: PARKINSON^S DISEASE
     Dosage: 1 DF:LEVODOPA 50MG, CARBIDOPA HYDRATE 5.4MG(CARBIDOPA 5MG), ENTACAPONE 100MG, BID
     Route: 048

REACTIONS (2)
  - Intercepted product prescribing error [Unknown]
  - Parkinson^s disease [Unknown]

NARRATIVE: CASE EVENT DATE: 201908
